FAERS Safety Report 5277333-2 (Version None)
Quarter: 2007Q1

REPORT INFORMATION
  Report Type: 
  Country: None (occurrence: None)
  Receive Date: 20061213
  Receipt Date: 20060726
  Transmission Date: 20070707
  Serious: No
  Sender: FDA-Public Use
  Company Number: 2006UW13287

PATIENT
  Age: 50 Year
  Sex: Male
  Weight: 61.2356 kg

DRUGS (3)
  1. SEROQUEL [Suspect]
     Dosage: 400 MG HS PO
     Route: 048
     Dates: start: 20050901, end: 20060627
  2. PROZAC [Concomitant]
  3. AMBIEN [Concomitant]

REACTIONS (3)
  - ALANINE AMINOTRANSFERASE INCREASED [None]
  - ASPARTATE AMINOTRANSFERASE INCREASED [None]
  - THROMBOCYTOPENIA [None]
